FAERS Safety Report 15709518 (Version 1)
Quarter: 2018Q4

REPORT INFORMATION
  Report Type: Spontaneous
  Country: AR (occurrence: AR)
  Receive Date: 20181211
  Receipt Date: 20181211
  Transmission Date: 20190205
  Serious: Yes (Other)
  Sender: FDA-Public Use
  Company Number: AR-PFIZER INC-2018503696

PATIENT
  Age: 65 Year
  Sex: Male

DRUGS (1)
  1. SUTENT [Suspect]
     Active Substance: SUNITINIB MALATE
     Indication: METASTATIC RENAL CELL CARCINOMA
     Dosage: UNK, DAILY
     Dates: start: 20180618

REACTIONS (6)
  - Acne [Unknown]
  - Renal disorder [Unknown]
  - Gait disturbance [Recovering/Resolving]
  - Hepatitis B [Unknown]
  - Hypertension [Unknown]
  - Enterocolitis haemorrhagic [Unknown]

NARRATIVE: CASE EVENT DATE: 201810
